FAERS Safety Report 8780215 (Version 1)
Quarter: 2012Q4

REPORT INFORMATION
  Report Type: Spontaneous
  Country: US (occurrence: None)
  Receive Date: 20120904
  Receipt Date: 20120904
  Transmission Date: 20130627
  Serious: No
  Sender: FDA-Public Use
  Company Number: None

PATIENT
  Age: 56 Year
  Sex: Male
  Weight: 90.72 kg

DRUGS (1)
  1. DESLORATADINE [Suspect]
     Route: 048
     Dates: start: 20120730, end: 20120802

REACTIONS (2)
  - Hypersensitivity [None]
  - Product substitution issue [None]
